FAERS Safety Report 15061067 (Version 1)
Quarter: 2018Q2

REPORT INFORMATION
  Report Type: Spontaneous
  Country: US (occurrence: US)
  Receive Date: 20180625
  Receipt Date: 20180625
  Transmission Date: 20180711
  Serious: No
  Sender: FDA-Public Use
  Company Number: US-ROCHE-2039742

PATIENT
  Age: 75 Year
  Sex: Female
  Weight: 58.11 kg

DRUGS (2)
  1. XELODA [Suspect]
     Active Substance: CAPECITABINE
     Indication: BREAST CANCER
     Dosage: 3 TABLETS
     Route: 065
     Dates: start: 2017
  2. XELODA [Suspect]
     Active Substance: CAPECITABINE
     Dosage: 4 TABLETS
     Route: 065
     Dates: start: 201512

REACTIONS (6)
  - Eye pruritus [Unknown]
  - Eye irritation [Unknown]
  - Erythema [Not Recovered/Not Resolved]
  - Eye disorder [Not Recovered/Not Resolved]
  - Skin exfoliation [Not Recovered/Not Resolved]
  - Eye pain [Not Recovered/Not Resolved]

NARRATIVE: CASE EVENT DATE: 201706
